FAERS Safety Report 19809190 (Version 1)
Quarter: 2021Q3

REPORT INFORMATION
  Report Type: Spontaneous
  Country: US (occurrence: US)
  Receive Date: 20210909
  Receipt Date: 20210909
  Transmission Date: 20211014
  Serious: No
  Sender: FDA-Public Use
  Company Number: US-PFIZER INC-2021437431

PATIENT
  Age: 53 Year
  Sex: Male

DRUGS (1)
  1. INLYTA [Suspect]
     Active Substance: AXITINIB
     Indication: RENAL CANCER
     Dosage: 5 MG
     Dates: start: 20210212

REACTIONS (3)
  - Off label use [Unknown]
  - Blood pressure increased [Unknown]
  - Dysphonia [Unknown]

NARRATIVE: CASE EVENT DATE: 20210212
